APPROVED DRUG PRODUCT: CORTRIL
Active Ingredient: HYDROCORTISONE
Strength: 10MG
Dosage Form/Route: TABLET;VAGINAL
Application: N009796 | Product #001
Applicant: PFIPHARMECS DIV PFIZER INC
Approved: Approved Prior to Jan 1, 1982 | RLD: No | RS: No | Type: DISCN